FAERS Safety Report 5808397-2 (Version None)
Quarter: 2008Q3

REPORT INFORMATION
  Report Type: 
  Country: None (occurrence: None)
  Receive Date: 20080714
  Receipt Date: 20080703
  Transmission Date: 20090109
  Serious: Yes (Other)
  Sender: FDA-Public Use
  Company Number: PHHY2008BR12994

PATIENT
  Age: 88 Year
  Sex: Male

DRUGS (2)
  1. EXELON [Suspect]
     Indication: MEMORY IMPAIRMENT
     Dosage: 9MG/5CM, ONCE A DAY
     Dates: start: 20080301
  2. EXELON [Suspect]
     Dosage: 4.5MG

REACTIONS (4)
  - BLOOD PRESSURE INCREASED [None]
  - BLOOD PRESSURE SYSTOLIC INCREASED [None]
  - SKIN DISCOLOURATION [None]
  - VOMITING [None]
